FAERS Safety Report 15757366 (Version 1)
Quarter: 2018Q4

REPORT INFORMATION
  Report Type: Spontaneous
  Country: CA (occurrence: CA)
  Receive Date: 20181224
  Receipt Date: 20181224
  Transmission Date: 20190205
  Serious: Yes (Other)
  Sender: FDA-Public Use
  Company Number: CA-JAZZ-2018-CA-018498

PATIENT
  Sex: Male

DRUGS (2)
  1. PEG/L-ASPARAGINASE [Suspect]
     Active Substance: PEGASPARGASE
     Indication: B PRECURSOR TYPE ACUTE LEUKAEMIA
     Dosage: UNKNOWN DOSE
     Route: 065
  2. ERWINASE [Suspect]
     Active Substance: ASPARAGINASE ERWINIA CHRYSANTHEMI
     Indication: B PRECURSOR TYPE ACUTE LEUKAEMIA
     Dosage: UNKNOWN DOSE
     Route: 065

REACTIONS (2)
  - Leukaemia recurrent [Not Recovered/Not Resolved]
  - Urticaria [Unknown]
